FAERS Safety Report 9703733 (Version 1)
Quarter: 2013Q4

REPORT INFORMATION
  Report Type: Report from Study
  Country: US (occurrence: US)
  Receive Date: 20131122
  Receipt Date: 20131122
  Transmission Date: 20140711
  Serious: Yes (Hospitalization, Other)
  Sender: FDA-Public Use
  Company Number: US-JNJFOC-20131112803

PATIENT
  Age: 39 Year
  Sex: Female
  Weight: 86.18 kg

DRUGS (6)
  1. REMICADE [Suspect]
     Indication: RHEUMATOID ARTHRITIS
     Route: 042
     Dates: start: 201301
  2. METHOTREXATE [Concomitant]
     Indication: RHEUMATOID ARTHRITIS
     Route: 048
     Dates: start: 201212
  3. FOLIC ACID [Concomitant]
     Indication: RHEUMATOID ARTHRITIS
     Route: 048
     Dates: start: 201212
  4. NAPROSYN [Concomitant]
     Indication: RHEUMATOID ARTHRITIS
     Route: 048
     Dates: start: 2013
  5. MULTIVITAMINS [Concomitant]
     Route: 048
     Dates: start: 2012
  6. FISH OIL [Concomitant]
     Route: 048
     Dates: start: 2012

REACTIONS (2)
  - Pancreatitis [Not Recovered/Not Resolved]
  - Abscess limb [Recovered/Resolved]
